FAERS Safety Report 16862469 (Version 2)
Quarter: 2019Q4

REPORT INFORMATION
  Report Type: Report from Study
  Country: DE (occurrence: DE)
  Receive Date: 20190927
  Receipt Date: 20191031
  Transmission Date: 20200122
  Serious: Yes (Death, Life-Threatening)
  Sender: FDA-Public Use
  Company Number: DE-VELOXIS PHARMACEUTICALS-2019VELDE-000489

PATIENT
  Age: 57 Year
  Sex: Male
  Weight: 111 kg

DRUGS (5)
  1. TORASEMIDE [Concomitant]
     Active Substance: TORSEMIDE
     Indication: END STAGE RENAL DISEASE
     Dosage: 100 MG DAILY
     Route: 065
     Dates: start: 201610
  2. ENVARSUS XR [Suspect]
     Active Substance: TACROLIMUS
     Indication: PROPHYLAXIS AGAINST TRANSPLANT REJECTION
     Dosage: 0.75 MG DAILY
     Route: 048
     Dates: start: 20170406
  3. VORICONAZOLE. [Concomitant]
     Active Substance: VORICONAZOLE
     Indication: ASPERGILLOMA
     Dosage: 400 MG DAILY LONG-TERM ANTIBIOSIS
     Route: 048
     Dates: start: 201708
  4. ALLOPURINOL. [Concomitant]
     Active Substance: ALLOPURINOL
     Indication: HYPERURICAEMIA
     Dosage: 100 MG DAILY
     Route: 065
     Dates: start: 201610
  5. ASPIRIN. [Concomitant]
     Active Substance: ASPIRIN
     Indication: PRODUCT USED FOR UNKNOWN INDICATION
     Dosage: 100 MG DAILY
     Dates: start: 201610

REACTIONS (3)
  - Septic shock [Fatal]
  - Cardiogenic shock [Fatal]
  - Acute myocardial infarction [Fatal]

NARRATIVE: CASE EVENT DATE: 20181217
